FAERS Safety Report 8322353-4 (Version None)
Quarter: 2012Q2

REPORT INFORMATION
  Report Type: 
  Country: None (occurrence: None)
  Receive Date: 20120430
  Receipt Date: 20120426
  Transmission Date: 20120825
  Serious: Yes (Death, Life-Threatening, Hospitalization, Other)
  Sender: FDA-Public Use
  Company Number: FR-GENZYME-CLOF-1002125

PATIENT
  Sex: Male
  Weight: 93 kg

DRUGS (13)
  1. PREDNISOLONE [Suspect]
     Indication: ACUTE LYMPHOCYTIC LEUKAEMIA
     Dosage: 120 MG, UNK
     Route: 048
     Dates: start: 20120314, end: 20120320
  2. METHOTREXATE [Suspect]
     Dosage: 15 MG, UNK
     Route: 037
     Dates: start: 20120327, end: 20120327
  3. CLAFORAN [Concomitant]
     Indication: PYREXIA
     Dosage: 3 G, UNK
     Route: 042
     Dates: start: 20120313, end: 20120331
  4. NOXAFIL [Concomitant]
     Indication: ANTIFUNGAL PROPHYLAXIS
     Dosage: 600 MG, UNK
     Route: 048
     Dates: start: 20120320, end: 20120331
  5. ADRIAMYCIN PFS [Suspect]
     Indication: ACUTE LYMPHOCYTIC LEUKAEMIA
     Dosage: 80 MG, UNK
     Route: 042
     Dates: start: 20120328, end: 20120328
  6. VINCRISTINE [Suspect]
     Indication: ACUTE LYMPHOCYTIC LEUKAEMIA
     Dosage: 1 MG, UNK
     Route: 042
     Dates: start: 20120321, end: 20120328
  7. METHOTREXATE [Suspect]
     Indication: ACUTE LYMPHOCYTIC LEUKAEMIA
     Dosage: 15 MG, UNK
     Route: 037
     Dates: start: 20120320, end: 20120320
  8. BACTRIM [Concomitant]
     Indication: ANTIBIOTIC PROPHYLAXIS
     Dosage: 800 MG, 3X/W
     Route: 048
     Dates: start: 20120320, end: 20120331
  9. PREDNISOLONE [Suspect]
     Dosage: 20 MG, UNK
     Route: 037
     Dates: start: 20120327, end: 20120327
  10. PREDNISOLONE [Suspect]
     Dosage: 20 MG, UNK
     Route: 037
     Dates: start: 20120320, end: 20120320
  11. ZELITREX [Concomitant]
     Indication: ANTIVIRAL PROPHYLAXIS
     Dosage: 1000 MG, UNK
     Route: 048
     Dates: start: 20120320, end: 20120402
  12. EVOLTRA [Suspect]
     Indication: ACUTE LYMPHOCYTIC LEUKAEMIA
     Dosage: 60 MG, UNK
     Route: 042
     Dates: start: 20120314, end: 20120318
  13. PREDNISOLONE [Suspect]
     Dosage: 80 MG, UNK
     Route: 048
     Dates: start: 20120321, end: 20120401

REACTIONS (5)
  - CARDIAC ARREST [None]
  - NEUTROPENIC INFECTION [None]
  - CONVULSION [None]
  - MULTI-ORGAN FAILURE [None]
  - NEUTROPENIA [None]
